FAERS Safety Report 5421291-4 (Version None)
Quarter: 2007Q3

REPORT INFORMATION
  Report Type: 
  Country: None (occurrence: None)
  Receive Date: 20070821
  Receipt Date: 20070813
  Transmission Date: 20080115
  Serious: Yes (Other)
  Sender: FDA-Public Use
  Company Number: US-ELI_LILLY_AND_COMPANY-US200708002887

PATIENT
  Age: 39 Year
  Sex: Female

DRUGS (2)
  1. HUMULIN N [Suspect]
     Indication: DIABETES MELLITUS
     Dates: start: 20070201
  2. HUMULIN N [Suspect]
     Dates: start: 20070808

REACTIONS (5)
  - ABORTION SPONTANEOUS [None]
  - BLOOD GLUCOSE INCREASED [None]
  - DRUG EXPOSURE DURING PREGNANCY [None]
  - PAIN IN EXTREMITY [None]
  - PARAESTHESIA [None]
